FAERS Safety Report 4927521-7 (Version None)
Quarter: 2006Q1

REPORT INFORMATION
  Report Type: 
  Country: None (occurrence: None)
  Receive Date: 20060228
  Receipt Date: 20050419
  Transmission Date: 20060701
  Serious: Yes (Hospitalization, Other)
  Sender: FDA-Public Use
  Company Number: US-MERCK-0504USA03803

PATIENT
  Age: 53 Year
  Sex: Female
  Weight: 77 kg

DRUGS (5)
  1. VIOXX [Suspect]
     Route: 048
     Dates: start: 19990101, end: 20041001
  2. PREDNISONE [Concomitant]
     Route: 048
  3. ULTRAM [Concomitant]
     Route: 048
  4. TYLENOL (CAPLET) [Concomitant]
     Route: 065
  5. FOLIC ACID [Concomitant]
     Route: 065

REACTIONS (30)
  - ABDOMINAL DISCOMFORT [None]
  - ANGINA UNSTABLE [None]
  - AORTIC CALCIFICATION [None]
  - BACK PAIN [None]
  - BRONCHITIS [None]
  - BURSITIS [None]
  - CELLULITIS [None]
  - CEREBROVASCULAR ACCIDENT [None]
  - CORONARY ARTERY DISEASE [None]
  - DIVERTICULUM DUODENAL [None]
  - DIZZINESS [None]
  - EXOSTOSIS [None]
  - FALL [None]
  - GALLBLADDER DISORDER [None]
  - HIATUS HERNIA [None]
  - HYPERLIPIDAEMIA [None]
  - JOINT DISLOCATION [None]
  - JOINT SPRAIN [None]
  - MUSCULOSKELETAL PAIN [None]
  - MYOCARDIAL INFARCTION [None]
  - MYOCARDIAL ISCHAEMIA [None]
  - NEPHROLITHIASIS [None]
  - OEDEMA PERIPHERAL [None]
  - PAIN IN EXTREMITY [None]
  - PERIARTHRITIS [None]
  - RECTAL HAEMORRHAGE [None]
  - RENAL CYST [None]
  - SHOULDER PAIN [None]
  - SPINAL COLUMN STENOSIS [None]
  - TEARFULNESS [None]
